FAERS Safety Report 10758297 (Version 3)
Quarter: 2015Q3

REPORT INFORMATION
  Report Type: Report from Study
  Country: US (occurrence: US)
  Receive Date: 20150203
  Receipt Date: 20150807
  Transmission Date: 20151125
  Serious: Yes (Death, Hospitalization, Other)
  Sender: FDA-Public Use
  Company Number: US-GILEAD-2015-0134480

PATIENT
  Age: 74 Year
  Sex: Female

DRUGS (20)
  1. GLUCOSAMINE [Concomitant]
     Active Substance: GLUCOSAMINE
  2. AMBRISENTAN [Suspect]
     Active Substance: AMBRISENTAN
     Indication: PULMONARY HYPERTENSION
     Dosage: 10 MG, QD
     Route: 065
     Dates: start: 20110502
  3. AMBRISENTAN [Suspect]
     Active Substance: AMBRISENTAN
     Indication: PULMONARY VENO-OCCLUSIVE DISEASE
  4. AMBIEN [Concomitant]
     Active Substance: ZOLPIDEM TARTRATE
  5. BENADRYL [Concomitant]
     Active Substance: DIPHENHYDRAMINE HYDROCHLORIDE
  6. METOLAZONE. [Concomitant]
     Active Substance: METOLAZONE
  7. SULFACETAMIDE. [Concomitant]
     Active Substance: SULFACETAMIDE
  8. ADEMPAS [Suspect]
     Active Substance: RIOCIGUAT
     Indication: PRODUCT USED FOR UNKNOWN INDICATION
     Route: 065
  9. NORCO [Concomitant]
     Active Substance: ACETAMINOPHEN\HYDROCODONE BITARTRATE
  10. POTASSIUM [Concomitant]
     Active Substance: POTASSIUM
  11. SPIRONOLACTONE. [Concomitant]
     Active Substance: SPIRONOLACTONE
  12. ASPIRIN                            /00002701/ [Concomitant]
     Active Substance: ASPIRIN
  13. EFFEXOR [Concomitant]
     Active Substance: VENLAFAXINE HYDROCHLORIDE
  14. COZAAR [Concomitant]
     Active Substance: LOSARTAN POTASSIUM
  15. TROSPIUM [Concomitant]
     Active Substance: TROSPIUM
  16. NITROFURANTOIN. [Concomitant]
     Active Substance: NITROFURANTOIN
  17. ADCIRCA [Suspect]
     Active Substance: TADALAFIL
     Indication: PRODUCT USED FOR UNKNOWN INDICATION
     Route: 065
  18. TORSEMIDE. [Concomitant]
     Active Substance: TORSEMIDE
  19. FAMOTIDINE. [Concomitant]
     Active Substance: FAMOTIDINE
  20. BACTRIM [Concomitant]
     Active Substance: SULFAMETHOXAZOLE\TRIMETHOPRIM

REACTIONS (5)
  - Urinary tract infection [Not Recovered/Not Resolved]
  - Pulmonary hypertension [Fatal]
  - Cardiac failure congestive [Not Recovered/Not Resolved]
  - Pulmonary thrombosis [Not Recovered/Not Resolved]
  - Dyspnoea [Not Recovered/Not Resolved]

NARRATIVE: CASE EVENT DATE: 20150121
